FAERS Safety Report 8622999-X (Version None)
Quarter: 2012Q3

REPORT INFORMATION
  Report Type: 
  Country: None (occurrence: None)
  Receive Date: 20120827
  Receipt Date: 20120816
  Transmission Date: 20120928
  Serious: Yes (Other)
  Sender: FDA-Public Use
  Company Number: BR-JNJFOC-20120808952

PATIENT
  Sex: Male
  Weight: 58 kg

DRUGS (3)
  1. INVEGA [Suspect]
     Indication: DEPRESSION
     Route: 048
     Dates: start: 20120627
  2. BUPROPION HCL [Concomitant]
     Indication: DEPRESSION
     Route: 065
     Dates: start: 20060101
  3. CLONAZEPAM [Concomitant]
     Indication: DEPRESSION
     Route: 065
     Dates: start: 20060101

REACTIONS (4)
  - DRUG INEFFECTIVE [None]
  - MEDICATION RESIDUE [None]
  - SUICIDE ATTEMPT [None]
  - ALBUMIN URINE PRESENT [None]
